FAERS Safety Report 9209793 (Version 1)
Quarter: 2013Q1

REPORT INFORMATION
  Report Type: Spontaneous
  Country: US (occurrence: None)
  Receive Date: 20120820
  Receipt Date: 20120820
  Transmission Date: 20140127
  Serious: No
  Sender: FDA-Public Use
  Company Number: 1000030927

PATIENT
  Sex: Female

DRUGS (4)
  1. VIIBRYD [Suspect]
     Indication: DEPRESSION
     Route: 048
     Dates: start: 201202, end: 2012
  2. YASMIN (DROSPIRENONE W/ETHINYLESTRADIOL) (DROSPIRENONE W/ETHINYLESTRADIOL) [Concomitant]
  3. ALLEGRA (FEXOFENADINE HYDROCHLORIDE) (FEXOFENADINE HYDROCHLORIDE) [Concomitant]
  4. XANAX (ALPRAZOLAM) (ALPRAZOLAM) [Concomitant]

REACTIONS (4)
  - Migraine [None]
  - Nightmare [None]
  - Weight increased [None]
  - Hyperhidrosis [None]
